FAERS Safety Report 16221138 (Version 1)
Quarter: 2019Q2

REPORT INFORMATION
  Report Type: Report from Study
  Country: US (occurrence: US)
  Receive Date: 20190422
  Receipt Date: 20190422
  Transmission Date: 20190711
  Serious: Yes (Hospitalization, Other)
  Sender: FDA-Public Use
  Company Number: US-BRISTOL-MYERS SQUIBB COMPANY-BMS-2019-038694

PATIENT
  Age: 43 Year
  Sex: Female
  Weight: 88.9 kg

DRUGS (2)
  1. IPILIMUMAB [Suspect]
     Active Substance: IPILIMUMAB
     Indication: DESMOID TUMOUR
     Dosage: 104 MILLIGRAM
     Route: 042
     Dates: start: 20180402, end: 20180625
  2. NIVOLUMAB [Suspect]
     Active Substance: NIVOLUMAB
     Indication: DESMOID TUMOUR
     Dosage: 480 MILLIGRAM
     Route: 065
     Dates: start: 20180402, end: 20180709

REACTIONS (2)
  - Diabetic ketoacidosis [Recovered/Resolved]
  - Arthritis [Recovered/Resolved]

NARRATIVE: CASE EVENT DATE: 20181024
